FAERS Safety Report 25552961 (Version 1)
Quarter: 2025Q3

REPORT INFORMATION
  Report Type: Spontaneous
  Country: US (occurrence: US)
  Receive Date: 20250715
  Receipt Date: 20250715
  Transmission Date: 20251021
  Serious: Yes (Hospitalization)
  Sender: JOHNSON AND JOHNSON
  Company Number: US-JNJFOC-20250710919

PATIENT
  Age: 22 Year
  Sex: Female

DRUGS (2)
  1. UPTRAVI [Suspect]
     Active Substance: SELEXIPAG
     Indication: Pulmonary hypertension
     Dosage: 3 TABLETS OF THE 800MCG BID TWICE A DAY FOR 1 DAY INSTEAD OF 3 TABLETS OF THE 200MCG
     Route: 048
  2. UPTRAVI [Suspect]
     Active Substance: SELEXIPAG
     Dosage: 200MCG TABLETS WAS TAKING 3 TABLETS TWICE A DAY
     Route: 048

REACTIONS (3)
  - Headache [Recovered/Resolved]
  - Overdose [Unknown]
  - Medication error [Unknown]
